FAERS Safety Report 21497683 (Version 1)
Quarter: 2022Q4

REPORT INFORMATION
  Report Type: Report from Study
  Country: US (occurrence: US)
  Receive Date: 20221024
  Receipt Date: 20221024
  Transmission Date: 20230113
  Serious: No
  Sender: FDA-Public Use
  Company Number: US-ABBVIE-22K-163-4429702-00

PATIENT
  Sex: Male

DRUGS (4)
  1. HUMIRA [Suspect]
     Active Substance: ADALIMUMAB
     Indication: Crohn^s disease
     Dosage: TIME INTERVAL: 1 TOTAL: DAY 1,  40MG/0.4ML, DISCONTINUED IN OCT 2021
     Route: 058
     Dates: start: 202110
  2. HUMIRA [Suspect]
     Active Substance: ADALIMUMAB
     Dosage: TIME INTERVAL: 1 TOTAL: DAY 15,  40MG/0.4ML, DISCONTINUED IN 2021
     Route: 058
     Dates: start: 2021
  3. HUMIRA [Suspect]
     Active Substance: ADALIMUMAB
     Dosage: 40MG/0.4ML
     Route: 058
     Dates: start: 2021, end: 202205
  4. HUMIRA [Suspect]
     Active Substance: ADALIMUMAB
     Dosage: 40MG/0.4ML
     Route: 058
     Dates: start: 2022

REACTIONS (9)
  - Adrenal insufficiency [Unknown]
  - Crohn^s disease [Unknown]
  - Arthralgia [Unknown]
  - Vomiting [Recovering/Resolving]
  - Fatigue [Recovering/Resolving]
  - Gastrointestinal sounds abnormal [Unknown]
  - Abdominal distension [Recovering/Resolving]
  - Nausea [Recovering/Resolving]
  - Flatulence [Unknown]
